FAERS Safety Report 7133236-X (Version None)
Quarter: 2010Q4

REPORT INFORMATION
  Report Type: 
  Country: None (occurrence: None)
  Receive Date: 20101117
  Receipt Date: 20101021
  Transmission Date: 20110411
  Serious: No
  Sender: FDA-Public Use
  Company Number: 2010-00912

PATIENT
  Age: 60 Year
  Sex: Female

DRUGS (1)
  1. ZICAM COLD REMEDY RAPIDMELTS W/VITAMIN C + ECHINACEA [Suspect]
     Dosage: 1 DOSE
     Dates: start: 20101018, end: 20101018

REACTIONS (3)
  - AGEUSIA [None]
  - OROPHARYNGEAL PAIN [None]
  - STOMATITIS [None]
